FAERS Safety Report 4714283-1 (Version None)
Quarter: 2005Q3

REPORT INFORMATION
  Report Type: 
  Country: None (occurrence: None)
  Receive Date: 20050714
  Receipt Date: 20050629
  Transmission Date: 20060218
  Serious: Yes (Death)
  Sender: FDA-Public Use
  Company Number: JP-JNJFOC-20050201104

PATIENT
  Age: 77 Year
  Sex: Male

DRUGS (12)
  1. TAVANIC [Suspect]
     Indication: URINARY TRACT INFECTION
     Route: 049
     Dates: start: 20041222, end: 20041223
  2. ACETYLCYSTEINE [Concomitant]
  3. VOMEX [Concomitant]
     Route: 030
  4. VOMEX [Concomitant]
     Route: 030
  5. DELIX [Concomitant]
  6. ALNA [Concomitant]
     Route: 065
  7. CARDULAR [Concomitant]
     Route: 065
  8. ASPIRIN [Concomitant]
     Route: 065
  9. CORVO [Concomitant]
     Route: 065
  10. CORVO [Concomitant]
     Route: 065
  11. AMBENE [Concomitant]
     Route: 065
  12. AMBENE [Concomitant]
     Route: 065

REACTIONS (2)
  - MALIGNANT NEOPLASM PROGRESSION [None]
  - SHOCK [None]
